FAERS Safety Report 8553120-4 (Version None)
Quarter: 2012Q3

REPORT INFORMATION
  Report Type: 
  Country: None (occurrence: None)
  Receive Date: 20120731
  Receipt Date: 20120726
  Transmission Date: 20120928
  Serious: Yes (Life-Threatening)
  Sender: FDA-Public Use
  Company Number: IT-SANOFI-AVENTIS-2012SA053050

PATIENT
  Age: 70 Year
  Sex: Male

DRUGS (4)
  1. FLUOROURACIL [Concomitant]
     Route: 042
     Dates: start: 20120308, end: 20120705
  2. OXALIPLATIN [Suspect]
     Route: 042
     Dates: start: 20120308, end: 20120705
  3. OXALIPLATIN [Suspect]
     Route: 042
     Dates: start: 20120705
  4. FOLINIC ACID [Concomitant]
     Route: 042
     Dates: start: 20120308, end: 20120705

REACTIONS (5)
  - LOSS OF CONSCIOUSNESS [None]
  - HYPOTENSION [None]
  - DYSPNOEA [None]
  - TRISMUS [None]
  - MIOSIS [None]
